FAERS Safety Report 6453989-3 (Version None)
Quarter: 2009Q4

REPORT INFORMATION
  Report Type: 
  Country: None (occurrence: None)
  Receive Date: 20091124
  Receipt Date: 20091117
  Transmission Date: 20100525
  Serious: Yes (Other)
  Sender: FDA-Public Use
  Company Number: US-BAYER-200940055NA

PATIENT
  Sex: Female
  Weight: 127 kg

DRUGS (1)
  1. BETASERON [Suspect]
     Indication: MULTIPLE SCLEROSIS
     Route: 058
     Dates: start: 19750101

REACTIONS (6)
  - DEPRESSION [None]
  - FIBROCYSTIC BREAST DISEASE [None]
  - FIBROMA [None]
  - HAEMORRHAGE [None]
  - UTERINE LEIOMYOMA [None]
  - WEIGHT INCREASED [None]
